FAERS Safety Report 8960605 (Version 1)
Quarter: 2012Q4

REPORT INFORMATION
  Report Type: 
  Country: ID (occurrence: ID)
  Receive Date: 20121213
  Receipt Date: 20121213
  Transmission Date: 20130627
  Serious: Yes (Death)
  Sender: FDA-Public Use
  Company Number: PHHY2012ID114480

PATIENT
  Age: 52 Year
  Sex: Female

DRUGS (1)
  1. GLIVEC [Suspect]
     Indication: CHRONIC MYELOID LEUKAEMIA
     Dosage: 100 mg, per day 1x4
     Route: 048

REACTIONS (3)
  - Death [Fatal]
  - Laboratory test abnormal [Unknown]
  - General physical health deterioration [Unknown]
